FAERS Safety Report 11428235 (Version 1)
Quarter: 2015Q3

REPORT INFORMATION
  Report Type: Spontaneous
  Country: US (occurrence: US)
  Receive Date: 20150828
  Receipt Date: 20150828
  Transmission Date: 20151125
  Serious: No
  Sender: FDA-Public Use
  Company Number: US-ROCHE-1242504

PATIENT
  Sex: Female

DRUGS (2)
  1. PEGASYS [Suspect]
     Active Substance: PEGINTERFERON ALFA-2A
     Indication: CHRONIC HEPATITIS C
     Route: 058
     Dates: start: 20130626
  2. RIBASPHERE RIBAPAK [Suspect]
     Active Substance: RIBAVIRIN
     Indication: CHRONIC HEPATITIS C
     Dosage: 800MG DAILY DIVIDED DOSES
     Route: 048
     Dates: start: 20130626

REACTIONS (11)
  - Nausea [Recovered/Resolved]
  - Pain [Not Recovered/Not Resolved]
  - Injection site irritation [Unknown]
  - Bronchitis [Unknown]
  - Dyspnoea exertional [Unknown]
  - Rash papular [Recovered/Resolved]
  - Restless legs syndrome [Unknown]
  - White blood cell count decreased [Not Recovered/Not Resolved]
  - Rash pruritic [Recovered/Resolved]
  - Dizziness [Unknown]
  - Stomatitis [Unknown]
